FAERS Safety Report 23530427 (Version 1)
Quarter: 2024Q1

REPORT INFORMATION
  Report Type: Spontaneous
  Country: IN (occurrence: IN)
  Receive Date: 20240216
  Receipt Date: 20240216
  Transmission Date: 20240410
  Serious: Yes (Hospitalization, Other)
  Sender: FDA-Public Use
  Company Number: IN-862174955-ML2024-00919

PATIENT
  Age: 38 Year
  Sex: Female

DRUGS (2)
  1. CLOMIPRAMINE [Suspect]
     Active Substance: CLOMIPRAMINE
     Indication: Obsessive-compulsive symptom
     Dosage: 25 MG AND WAS RAPIDLY TITRATED UP TO 75 MG
  2. AMISULPRIDE [Suspect]
     Active Substance: AMISULPRIDE
     Indication: Schizophrenia
     Dosage: INCREASED UP TO 600 MG OVER SIX WEEKS

REACTIONS (2)
  - Extrapyramidal disorder [Recovered/Resolved]
  - Drug interaction [Unknown]
